FAERS Safety Report 6442154-1 (Version None)
Quarter: 2009Q4

REPORT INFORMATION
  Report Type: 
  Country: None (occurrence: None)
  Receive Date: 20091116
  Receipt Date: 20091112
  Transmission Date: 20100525
  Serious: Yes (Death)
  Sender: FDA-Public Use
  Company Number: PHEH2009US11155

PATIENT
  Sex: Female

DRUGS (18)
  1. RECLAST [Suspect]
     Indication: OSTEOPOROSIS
     Dosage: UNK
     Route: 042
     Dates: start: 20080901
  2. ASPIRIN [Concomitant]
     Dosage: 81 MG, UNK
  3. ASTELIN [Concomitant]
     Dosage: 137 UG, UNK
     Route: 045
  4. BENICAR [Concomitant]
     Dosage: 40 MG, UNK
  5. CALCIUM [Concomitant]
  6. CITALOPRAM [Concomitant]
     Dosage: 10 MG, QD
  7. CITRUCEL [Concomitant]
     Dosage: UNK
  8. DETROL [Concomitant]
     Dosage: 2 MG, QD
  9. OXYCODONE HCL [Concomitant]
     Dosage: 5 MG, Q4H
  10. NITROFURANTOIN [Concomitant]
     Dosage: 100 MG, QD
  11. MULTI-VITAMINS [Concomitant]
     Dosage: 1 A DAY
  12. DILTIAZEM [Concomitant]
     Dosage: 420 MG, QD
  13. HYDROCHLOROTHIAZIDE [Concomitant]
     Dosage: 12.5 MG, QD
     Route: 048
  14. POTASSIUM CHLORIDE [Concomitant]
     Dosage: 20 MEQ, QD
  15. SENNA [Concomitant]
     Dosage: 2 UNK, QHS
  16. SYSTANE (PROPYLENE GLYCOL/MACROGOL) [Concomitant]
     Dosage: UNK
  17. ASCORBIC ACID [Concomitant]
  18. WARFARIN SODIUM [Concomitant]
     Dosage: 2 MG, QD

REACTIONS (1)
  - DEATH [None]
